FAERS Safety Report 25667190 (Version 1)
Quarter: 2025Q3

REPORT INFORMATION
  Report Type: Spontaneous
  Country: US (occurrence: US)
  Receive Date: 20250811
  Receipt Date: 20250811
  Transmission Date: 20251021
  Serious: No
  Sender: FERA
  Company Number: US-FERAPHARMA-2024-US-057635

PATIENT
  Age: 90 Year
  Sex: Female

DRUGS (7)
  1. ECHOTHIOPHATE IODIDE [Suspect]
     Active Substance: ECHOTHIOPHATE IODIDE
     Indication: Glaucoma
     Dates: start: 20241024
  2. NORVASC [Concomitant]
     Active Substance: AMLODIPINE BESYLATE
  3. MYRBETRIQ [Concomitant]
     Active Substance: MIRABEGRON
  4. OMEPRAZOLE [Concomitant]
     Active Substance: OMEPRAZOLE
  5. ROCKLATAN [Concomitant]
     Active Substance: LATANOPROST\NETARSUDIL MESYLATE
  6. COMBIGAN [Concomitant]
     Active Substance: BRIMONIDINE TARTRATE\TIMOLOL MALEATE
  7. LEVOTHYROXINE [Concomitant]
     Active Substance: LEVOTHYROXINE

REACTIONS (1)
  - Headache [Not Recovered/Not Resolved]

NARRATIVE: CASE EVENT DATE: 20241024
